FAERS Safety Report 6149762-6 (Version None)
Quarter: 2009Q2

REPORT INFORMATION
  Report Type: 
  Country: None (occurrence: None)
  Receive Date: 20090409
  Receipt Date: 20090402
  Transmission Date: 20091009
  Serious: Yes (Other)
  Sender: FDA-Public Use
  Company Number: DE-AMGEN-UK331587

PATIENT

DRUGS (11)
  1. NEULASTA [Suspect]
     Indication: CHEMOTHERAPY
     Route: 058
     Dates: start: 20081220, end: 20090103
  2. GEMCITABINE HCL [Suspect]
     Route: 042
     Dates: start: 20081219, end: 20081219
  3. GEMCITABINE HCL [Suspect]
     Dates: start: 20090102
  4. DOXORUBICIN HCL [Suspect]
     Route: 042
     Dates: start: 20081219, end: 20081219
  5. DOXORUBICIN HCL [Suspect]
     Dates: start: 20090102
  6. VINBLASTINE [Suspect]
     Route: 042
     Dates: start: 20081219, end: 20081219
  7. VINBLASTINE [Suspect]
     Dates: start: 20090102
  8. DECORTIN [Suspect]
     Route: 048
     Dates: start: 20081219, end: 20081221
  9. DECORTIN [Suspect]
     Dates: start: 20090102
  10. MCP-RATIOPHARM [Concomitant]
     Route: 065
  11. GRANISETRON HCL [Concomitant]
     Route: 065
     Dates: start: 20081219, end: 20090102

REACTIONS (2)
  - DYSPNOEA [None]
  - SYNCOPE [None]
